FAERS Safety Report 20134017 (Version 1)
Quarter: 2021Q4

REPORT INFORMATION
  Report Type: Spontaneous
  Country: DK (occurrence: DK)
  Receive Date: 20211201
  Receipt Date: 20211201
  Transmission Date: 20220303
  Serious: Yes (Death)
  Sender: FDA-Public Use
  Company Number: DK-PFIZER INC-202101515224

PATIENT
  Age: 71 Year
  Sex: Female

DRUGS (10)
  1. CLARITHROMYCIN [Suspect]
     Active Substance: CLARITHROMYCIN
     Indication: Tuberculosis
     Dosage: UNK
     Route: 048
     Dates: start: 2017, end: 2017
  2. CLARITHROMYCIN [Suspect]
     Active Substance: CLARITHROMYCIN
     Dosage: UNK
     Route: 048
     Dates: start: 2017, end: 2018
  3. CLARITHROMYCIN [Suspect]
     Active Substance: CLARITHROMYCIN
     Dosage: UNK
     Route: 042
     Dates: start: 2018
  4. AMIKACIN [Suspect]
     Active Substance: AMIKACIN
     Indication: Tuberculosis
     Dosage: UNK
     Route: 042
     Dates: start: 2018
  5. ETHAMBUTOL [Suspect]
     Active Substance: ETHAMBUTOL HYDROCHLORIDE
     Indication: Product used for unknown indication
     Dosage: UNK
     Route: 065
     Dates: start: 2017, end: 2017
  6. ETHAMBUTOL [Suspect]
     Active Substance: ETHAMBUTOL HYDROCHLORIDE
     Dosage: UNK
     Route: 065
     Dates: start: 2017, end: 2018
  7. ETHAMBUTOL [Suspect]
     Active Substance: ETHAMBUTOL HYDROCHLORIDE
     Dosage: UNK
     Route: 048
     Dates: start: 2018
  8. RIFABUTIN [Suspect]
     Active Substance: RIFABUTIN
     Indication: Tuberculosis
     Dosage: UNK
     Route: 065
     Dates: start: 2017, end: 2018
  9. RIFABUTIN [Suspect]
     Active Substance: RIFABUTIN
     Dosage: UNK
     Route: 048
     Dates: start: 2018
  10. RIFAMPIN [Suspect]
     Active Substance: RIFAMPIN
     Indication: Tuberculosis
     Dosage: UNK
     Route: 065
     Dates: start: 2017, end: 2017

REACTIONS (1)
  - Drug ineffective [Fatal]
